FAERS Safety Report 7568235-7 (Version None)
Quarter: 2011Q2

REPORT INFORMATION
  Report Type: 
  Country: None (occurrence: None)
  Receive Date: 20110623
  Receipt Date: 20110616
  Transmission Date: 20111010
  Serious: Yes (Death, Life-Threatening, Other)
  Sender: FDA-Public Use
  Company Number: CO-ROCHE-764520

PATIENT
  Sex: Female

DRUGS (3)
  1. TRAMADOL HCL [Concomitant]
     Indication: PAIN
     Dosage: DOSE: DROPS. FREQUENCY: PRN
     Route: 048
  2. AVASTIN [Suspect]
     Indication: BREAST CANCER
     Dosage: LAST INFUSION: 17 FEB 2011
     Route: 042
     Dates: start: 20100906
  3. ACETAMINOPHEN [Concomitant]
     Indication: PAIN
     Route: 048

REACTIONS (3)
  - INFUSION RELATED REACTION [None]
  - HYPERTENSION [None]
  - DEATH [None]
